FAERS Safety Report 6577931-X (Version None)
Quarter: 2010Q1

REPORT INFORMATION
  Report Type: 
  Country: None (occurrence: None)
  Receive Date: 20100211
  Receipt Date: 20100202
  Transmission Date: 20100710
  Serious: Yes (Hospitalization)
  Sender: FDA-Public Use
  Company Number: GB-SP-2010-01000

PATIENT
  Age: 79 Year
  Sex: Male

DRUGS (2)
  1. IMMUCYST [Suspect]
     Indication: DRUG USE FOR UNKNOWN INDICATION
     Dosage: NOT REPORTED
     Route: 043
     Dates: end: 20091107
  2. IMMUCYST [Suspect]
     Dosage: NOT REPORTED
     Route: 043
     Dates: end: 20091107

REACTIONS (5)
  - BLADDER IRRITATION [None]
  - CATHETER SITE HAEMORRHAGE [None]
  - DISSEMINATED TUBERCULOSIS [None]
  - MEDICAL DEVICE COMPLICATION [None]
  - SEPSIS [None]
